FAERS Safety Report 6182655-7 (Version None)
Quarter: 2009Q2

REPORT INFORMATION
  Report Type: 
  Country: None (occurrence: None)
  Receive Date: 20090507
  Receipt Date: 20090430
  Transmission Date: 20091009
  Serious: Yes (Hospitalization)
  Sender: FDA-Public Use
  Company Number: A0751901A

PATIENT
  Age: 60 Year
  Sex: Female
  Weight: 100 kg

DRUGS (7)
  1. AVANDIA [Suspect]
     Dosage: 4MG PER DAY
     Route: 048
     Dates: start: 20040101, end: 20061201
  2. GLYBURIDE [Concomitant]
  3. SYNTHROID [Concomitant]
  4. BENICAR [Concomitant]
  5. LIPITOR [Concomitant]
  6. LOPID [Concomitant]
  7. HYDROCHLOROTHIAZIDE [Concomitant]

REACTIONS (6)
  - ARTERIOSCLEROSIS [None]
  - CORONARY ARTERY DISEASE [None]
  - HEART INJURY [None]
  - HYPERLIPIDAEMIA [None]
  - MYOCARDIAL INFARCTION [None]
  - OEDEMA [None]
